FAERS Safety Report 24538609 (Version 1)
Quarter: 2024Q4

REPORT INFORMATION
  Report Type: Spontaneous
  Country: US (occurrence: US)
  Receive Date: 20241023
  Receipt Date: 20241023
  Transmission Date: 20250115
  Serious: No
  Sender: UNKNOWN
  Company Number: US-862174955-ML2024-05322

PATIENT
  Age: 84 Year
  Sex: Female
  Weight: 63.5 kg

DRUGS (5)
  1. DORZOLAMIDE HYDROCHLORIDE [Suspect]
     Active Substance: DORZOLAMIDE HYDROCHLORIDE
     Indication: Glaucoma
     Dosage: IN MORNING
     Route: 047
     Dates: start: 202408
  2. LATANOPROST [Concomitant]
     Active Substance: LATANOPROST
     Indication: Intraocular pressure increased
     Dosage: AT NIGHT
  3. LOSARTAN [Concomitant]
     Active Substance: LOSARTAN
     Indication: Blood pressure abnormal
  4. AMLODIPINE [Concomitant]
     Active Substance: AMLODIPINE BESYLATE
     Indication: Blood pressure abnormal
  5. VITAMINS [Concomitant]
     Active Substance: VITAMINS
     Indication: Product used for unknown indication

REACTIONS (1)
  - Alopecia [Not Recovered/Not Resolved]

NARRATIVE: CASE EVENT DATE: 20240801
